FAERS Safety Report 7296898-2 (Version None)
Quarter: 2011Q1

REPORT INFORMATION
  Report Type: 
  Country: None (occurrence: None)
  Receive Date: 20110204
  Receipt Date: 20110122
  Transmission Date: 20110831
  Serious: Yes (Hospitalization, Other)
  Sender: FDA-Public Use
  Company Number: 2010005566

PATIENT
  Age: 81 Year
  Sex: Female

DRUGS (1)
  1. TARCEVA [Suspect]
     Indication: LUNG NEOPLASM MALIGNANT
     Dosage: (150 MG, QD), ORAL
     Route: 048

REACTIONS (11)
  - WEIGHT DECREASED [None]
  - DISEASE PROGRESSION [None]
  - ROSACEA [None]
  - CHRONIC OBSTRUCTIVE PULMONARY DISEASE [None]
  - CEREBRAL ISCHAEMIA [None]
  - ATELECTASIS [None]
  - PNEUMONIA [None]
  - HYPOALBUMINAEMIA [None]
  - HAEMOGLOBIN DECREASED [None]
  - LUNG INFILTRATION [None]
  - DIARRHOEA [None]
